FAERS Safety Report 21418214 (Version 2)
Quarter: 2022Q4

REPORT INFORMATION
  Report Type: Report from Study
  Country: FR (occurrence: FR)
  Receive Date: 20221006
  Receipt Date: 20221122
  Transmission Date: 20230113
  Serious: Yes (Hospitalization, Other)
  Sender: FDA-Public Use
  Company Number: FR-BRISTOL-MYERS SQUIBB COMPANY-2022-113693

PATIENT
  Age: 76 Year
  Sex: Male
  Weight: 85 kg

DRUGS (6)
  1. XARELTO [Concomitant]
     Active Substance: RIVAROXABAN
     Indication: Product used for unknown indication
     Route: 048
     Dates: start: 2010
  2. PERMIXION [Concomitant]
     Indication: Product used for unknown indication
     Route: 048
     Dates: start: 2000
  3. ALDARA [Concomitant]
     Active Substance: IMIQUIMOD
     Indication: Actinic keratosis
     Dosage: 1 DOSAGE FORM =1 UNIT NOS
     Route: 061
     Dates: start: 20220822, end: 20220928
  4. PREDNISONE [Concomitant]
     Active Substance: PREDNISONE
     Indication: Arthralgia
     Route: 048
     Dates: start: 20220914, end: 20220920
  5. PREDNISONE [Concomitant]
     Active Substance: PREDNISONE
     Route: 048
     Dates: start: 20220906, end: 20220913
  6. TRAMADOL [Concomitant]
     Active Substance: TRAMADOL
     Indication: Arthralgia
     Route: 048
     Dates: start: 20220916, end: 20220926

REACTIONS (1)
  - Seronegative arthritis [Recovered/Resolved with Sequelae]

NARRATIVE: CASE EVENT DATE: 20220926
